FAERS Safety Report 4588981-7 (Version None)
Quarter: 2005Q1

REPORT INFORMATION
  Report Type: 
  Country: None (occurrence: None)
  Receive Date: 20050222
  Receipt Date: 20050119
  Transmission Date: 20050727
  Serious: Yes (Hospitalization)
  Sender: FDA-Public Use
  Company Number: DE-ABBOTT-05P-062-0287622-00

PATIENT
  Sex: Female

DRUGS (1)
  1. KLACID PRO [Suspect]
     Indication: INFECTION
     Route: 048
     Dates: start: 20050106, end: 20050108

REACTIONS (3)
  - ANTEROGRADE AMNESIA [None]
  - CONVULSION [None]
  - RETROGRADE AMNESIA [None]
